FAERS Safety Report 7413148-4 (Version None)
Quarter: 2011Q2

REPORT INFORMATION
  Report Type: 
  Country: None (occurrence: None)
  Receive Date: 20110413
  Receipt Date: 20110407
  Transmission Date: 20111010
  Serious: Yes (Other)
  Sender: FDA-Public Use
  Company Number: CA-PFIZER INC-2011077327

PATIENT
  Sex: Female

DRUGS (14)
  1. NITROGLYCERIN SPRAY [Concomitant]
     Dosage: UNK
  2. AMITRIPTYLINE [Concomitant]
     Dosage: 75 MG, 1X/DAY, BEDTIME
  3. LYRICA [Suspect]
     Dosage: 75 MG, 2X/DAY
  4. ASPIRIN [Concomitant]
     Dosage: 80 MG, UNK
  5. CELEBREX [Concomitant]
     Dosage: 200 MG, 1X/DAY
  6. LYRICA [Suspect]
     Dosage: 50 MG, 2X/DAY
     Dates: start: 20110201
  7. METFORMIN HYDROCHLORIDE [Concomitant]
     Dosage: 850 MG, 3X/DAY
  8. RABEPRAZOLE SODIUM [Concomitant]
     Dosage: UNK
  9. CALCIUM WITH VITAMIN D [Concomitant]
     Dosage: 500/400, UNK UNIT
  10. SALBUTAMOL [Concomitant]
     Dosage: UNK
  11. LIPITOR [Concomitant]
     Dosage: 40 MG, 1X/DAY, BEDTIME
  12. FLOVENT [Concomitant]
     Dosage: UNK
     Route: 055
  13. ATENOLOL [Concomitant]
     Dosage: 50 MG, UNK
  14. COZAAR [Concomitant]
     Dosage: 100 MG, 1X/DAY

REACTIONS (1)
  - HYPERGLYCAEMIA [None]
